FAERS Safety Report 23573895 (Version 1)
Quarter: 2024Q1

REPORT INFORMATION
  Report Type: Report from Study
  Country: CO (occurrence: CO)
  Receive Date: 20240228
  Receipt Date: 20240228
  Transmission Date: 20240410
  Serious: Yes (Other)
  Sender: FDA-Public Use
  Company Number: CO-ABBVIE-4267075

PATIENT
  Sex: Male
  Weight: 91 kg

DRUGS (2)
  1. SKYRIZI [Suspect]
     Active Substance: RISANKIZUMAB-RZAA
     Indication: Psoriasis
     Dosage: FORM STRENGTH: 75 MILLIGRAM
     Route: 058
     Dates: start: 20220602
  2. SKYRIZI [Suspect]
     Active Substance: RISANKIZUMAB-RZAA
     Dosage: FORM STRENGTH: 150 MILLIGRAM
     Route: 058
     Dates: start: 20230825

REACTIONS (19)
  - Urethral obstruction [Recovering/Resolving]
  - Walking disability [Recovering/Resolving]
  - Back pain [Recovering/Resolving]
  - Pigmentation disorder [Unknown]
  - Melanocytic naevus [Recovered/Resolved]
  - Feeling of despair [Recovering/Resolving]
  - Mobility decreased [Recovering/Resolving]
  - Cheilitis [Recovered/Resolved]
  - Feeding disorder [Recovered/Resolved]
  - Joint range of motion decreased [Recovering/Resolving]
  - Movement disorder [Recovering/Resolving]
  - Tongue injury [Recovered/Resolved]
  - Stomatitis [Recovered/Resolved]
  - Nephrolithiasis [Recovering/Resolving]
  - Calculus urethral [Recovering/Resolving]
  - Rash papular [Unknown]
  - Mouth injury [Unknown]
  - Lip injury [Unknown]
  - Anaesthetic complication [Unknown]

NARRATIVE: CASE EVENT DATE: 20220101
